FAERS Safety Report 14366782 (Version 4)
Quarter: 2018Q1

REPORT INFORMATION
  Report Type: Spontaneous
  Country: US (occurrence: US)
  Receive Date: 20180109
  Receipt Date: 20180220
  Transmission Date: 20180509
  Serious: No
  Sender: FDA-Public Use
  Company Number: US-BIOGEN-2018BI00505742

PATIENT
  Age: 37 Year
  Sex: Female

DRUGS (1)
  1. TYSABRI [Suspect]
     Active Substance: NATALIZUMAB
     Indication: MULTIPLE SCLEROSIS
     Route: 065
     Dates: start: 20111111

REACTIONS (7)
  - Asthenia [Unknown]
  - Confusional state [Unknown]
  - Loss of consciousness [Unknown]
  - Amnesia [Unknown]
  - Multiple sclerosis relapse [Recovered/Resolved with Sequelae]
  - Tremor [Unknown]
  - Multiple sclerosis [Unknown]

NARRATIVE: CASE EVENT DATE: 201712
